FAERS Safety Report 25062394 (Version 1)
Quarter: 2025Q1

REPORT INFORMATION
  Report Type: Report from Study
  Country: US (occurrence: US)
  Receive Date: 20250311
  Receipt Date: 20250311
  Transmission Date: 20250408
  Serious: No
  Sender: SUNOVION
  Company Number: US-SMPA-2025SPA001776AA

PATIENT

DRUGS (2)
  1. ORGOVYX [Suspect]
     Active Substance: RELUGOLIX
     Indication: Prostate cancer
     Route: 048
  2. ORGOVYX [Suspect]
     Active Substance: RELUGOLIX
     Dosage: 120 MG, QD
     Route: 048
     Dates: start: 20250131

REACTIONS (6)
  - Feeling abnormal [Unknown]
  - Tinnitus [Unknown]
  - Flatulence [Unknown]
  - Abdominal distension [Unknown]
  - Faeces soft [Unknown]
  - Frequent bowel movements [Unknown]
